FAERS Safety Report 13656722 (Version 1)
Quarter: 2017Q2

REPORT INFORMATION
  Report Type: Spontaneous
  Country: JP (occurrence: JP)
  Receive Date: 20170615
  Receipt Date: 20170615
  Transmission Date: 20170830
  Serious: Yes (Death, Other)
  Sender: FDA-Public Use
  Company Number: JP-HQ SPECIALTY-JP-2017INT000212

PATIENT
  Sex: Female

DRUGS (2)
  1. CISPLATIN. [Suspect]
     Active Substance: CISPLATIN
     Indication: CERVIX CARCINOMA
     Dosage: 70 MG/M2,2 HOUR IV INFUSION
     Route: 042
  2. FLUOROURACIL 5 FU [Suspect]
     Active Substance: FLUOROURACIL
     Indication: CERVIX CARCINOMA
     Dosage: UNK

REACTIONS (1)
  - Septic shock [Fatal]
